FAERS Safety Report 5230228-2 (Version None)
Quarter: 2007Q1

REPORT INFORMATION
  Report Type: 
  Country: None (occurrence: None)
  Receive Date: 20070206
  Receipt Date: 20061010
  Transmission Date: 20070707
  Serious: No
  Sender: FDA-Public Use
  Company Number: US-GLAXOSMITHKLINE-A0623074A

PATIENT
  Age: 58 Year
  Sex: Female

DRUGS (3)
  1. PAXIL CR [Suspect]
     Indication: DEPRESSION
     Dosage: 37.5MG AT NIGHT
     Route: 048
  2. PAXIL [Suspect]
     Indication: DEPRESSION
     Dosage: 40MG AT NIGHT
     Route: 048
  3. KLONOPIN [Concomitant]

REACTIONS (4)
  - DRUG INEFFECTIVE [None]
  - LIBIDO DECREASED [None]
  - SOMNOLENCE [None]
  - WEIGHT INCREASED [None]
